FAERS Safety Report 11869411 (Version 1)
Quarter: 2015Q4

REPORT INFORMATION
  Report Type: Report from Study
  Country: BR (occurrence: BR)
  Receive Date: 20151227
  Receipt Date: 20151227
  Transmission Date: 20160305
  Serious: Yes (Hospitalization)
  Sender: FDA-Public Use
  Company Number: PHHY2015BR168821

PATIENT
  Sex: Male
  Weight: 47 kg

DRUGS (1)
  1. EXELON [Suspect]
     Active Substance: RIVASTIGMINE TARTRATE
     Indication: DEMENTIA ALZHEIMER^S TYPE
     Dosage: UNK, BID
     Route: 065
     Dates: end: 201510

REACTIONS (1)
  - Pneumonia [Not Recovered/Not Resolved]
